FAERS Safety Report 8444006-4 (Version None)
Quarter: 2012Q2

REPORT INFORMATION
  Report Type: 
  Country: None (occurrence: None)
  Receive Date: 20120618
  Receipt Date: 20120612
  Transmission Date: 20120825
  Serious: Yes (Other)
  Sender: FDA-Public Use
  Company Number: PHHY2012JP014055

PATIENT
  Age: 76 Year
  Sex: Female
  Weight: 43 kg

DRUGS (5)
  1. FLUTICASONE PROPIONATE/SALMETEROL [Concomitant]
     Route: 025
  2. ZOLPIDEM [Concomitant]
     Route: 048
  3. VOLTAREN [Suspect]
     Indication: ANALGESIC THERAPY
     Dosage: 25 MG, UNK
     Route: 054
     Dates: start: 20111231, end: 20111231
  4. AMBROXOL HYDROCHLORIDE [Concomitant]
     Route: 048
  5. SINGULAIR [Concomitant]
     Route: 048

REACTIONS (1)
  - ASTHMA [None]
